FAERS Safety Report 6882567-7 (Version None)
Quarter: 2010Q3

REPORT INFORMATION
  Report Type: 
  Country: None (occurrence: None)
  Receive Date: 20100729
  Receipt Date: 20091023
  Transmission Date: 20110219
  Serious: No
  Sender: FDA-Public Use
  Company Number: US-MYLANLABS-2009S1017515

PATIENT
  Age: 63 Year
  Sex: Male

DRUGS (9)
  1. LEVOTHYROXINE SODIUM [Suspect]
     Indication: THYROID DISORDER
     Route: 048
     Dates: start: 19980101, end: 20090801
  2. LEVOTHYROXINE SODIUM [Suspect]
     Indication: HYPOTHYROIDISM
     Route: 048
     Dates: start: 19980101, end: 20090801
  3. LIPITOR [Concomitant]
  4. METOPROLOL TARTRATE [Concomitant]
  5. FLOMAX /01280302/ [Concomitant]
  6. FINASTERIDE [Concomitant]
  7. WARFARIN [Concomitant]
     Dosage: 4.5MG - 5MG
  8. FISH OIL [Concomitant]
  9. ASPIRIN [Concomitant]

REACTIONS (3)
  - BLOOD THYROID STIMULATING HORMONE INCREASED [None]
  - DRUG INEFFECTIVE [None]
  - FATIGUE [None]
